FAERS Safety Report 5005813-3 (Version None)
Quarter: 2006Q2

REPORT INFORMATION
  Report Type: 
  Country: None (occurrence: None)
  Receive Date: 20060515
  Receipt Date: 20060505
  Transmission Date: 20061013
  Serious: No
  Sender: FDA-Public Use
  Company Number: 224848

PATIENT
  Age: 43 Year
  Sex: Male
  Weight: 100.7 kg

DRUGS (1)
  1. XOLAIR [Suspect]
     Dosage: 375 MG, Q2W, INTRAMUSCULAR
     Route: 030

REACTIONS (1)
  - SENSATION OF FOREIGN BODY [None]
